FAERS Safety Report 12239500 (Version 2)
Quarter: 2017Q3

REPORT INFORMATION
  Report Type: Spontaneous
  Country: US (occurrence: US)
  Receive Date: 20160405
  Receipt Date: 20170712
  Transmission Date: 20171127
  Serious: Yes (Hospitalization)
  Sender: FDA-Public Use
  Company Number: US-BIOMARINAP-US-2016-109401

PATIENT
  Sex: Male

DRUGS (1)
  1. ALDURAZYME [Suspect]
     Active Substance: LARONIDASE
     Indication: MUCOPOLYSACCHARIDOSIS I
     Dosage: 8.7 MG, QW
     Route: 041
     Dates: start: 20160120, end: 20170511

REACTIONS (2)
  - Vomiting [Recovering/Resolving]
  - Pyrexia [Recovering/Resolving]
